FAERS Safety Report 19704960 (Version 1)
Quarter: 2021Q3

REPORT INFORMATION
  Report Type: Spontaneous
  Country: US (occurrence: US)
  Receive Date: 20210816
  Receipt Date: 20210816
  Transmission Date: 20211014
  Serious: No
  Sender: FDA-Public Use
  Company Number: None

PATIENT
  Age: 47 Year
  Sex: Male
  Weight: 103.5 kg

DRUGS (2)
  1. SINGULAIR [Concomitant]
     Active Substance: MONTELUKAST SODIUM
  2. WIXELA INHUB [Suspect]
     Active Substance: FLUTICASONE PROPIONATE\SALMETEROL XINAFOATE
     Indication: ASTHMA
     Dosage: ?          QUANTITY:60 PUFF(S);?
     Route: 055
     Dates: start: 20210104, end: 20210801

REACTIONS (4)
  - Asthma [None]
  - Cough [None]
  - Dyspnoea [None]
  - Peak expiratory flow rate decreased [None]

NARRATIVE: CASE EVENT DATE: 20210801
